FAERS Safety Report 21485784 (Version 1)
Quarter: 2022Q4

REPORT INFORMATION
  Report Type: Spontaneous
  Country: US (occurrence: None)
  Receive Date: 20221019
  Receipt Date: 20221019
  Transmission Date: 20230113
  Serious: No
  Sender: FDA-Public Use
  Company Number: None

PATIENT
  Age: 52 Year
  Sex: Female
  Weight: 39.46 kg

DRUGS (1)
  1. CLOPIDOGREL [Suspect]
     Active Substance: CLOPIDOGREL BISULFATE
     Indication: Vascular pseudoaneurysm
     Dosage: FREQUENCY : DAILY;?
     Route: 048
     Dates: start: 20220802, end: 20220826

REACTIONS (4)
  - Headache [None]
  - Dizziness [None]
  - Neck pain [None]
  - Product substitution issue [None]
